FAERS Safety Report 14218564 (Version 3)
Quarter: 2018Q4

REPORT INFORMATION
  Report Type: Report from Study
  Country: PL (occurrence: PL)
  Receive Date: 20171123
  Receipt Date: 20181207
  Transmission Date: 20190204
  Serious: Yes (Hospitalization)
  Sender: FDA-Public Use
  Company Number: PL-ASTRAZENECA-2016SF04731

PATIENT
  Age: 80 Year
  Sex: Female
  Weight: 64 kg

DRUGS (42)
  1. FRAXIPARINE [Concomitant]
     Active Substance: NADROPARIN CALCIUM
     Indication: INFLAMMATION
     Dates: start: 20160818, end: 20160831
  2. AUGMENTIN [Concomitant]
     Active Substance: AMOXICILLIN\CLAVULANATE POTASSIUM
     Indication: PETECHIAE
     Dates: start: 20160821, end: 20160830
  3. CLINDAMYCIN. [Concomitant]
     Active Substance: CLINDAMYCIN
     Indication: MYOSITIS
     Dates: start: 20160927, end: 20161013
  4. OXYCONTIN [Concomitant]
     Active Substance: OXYCODONE HYDROCHLORIDE
     Indication: MYALGIA
     Dates: start: 20160818, end: 20160828
  5. FRAXIPARINE [Concomitant]
     Active Substance: NADROPARIN CALCIUM
     Indication: MYOSITIS
     Dates: start: 20160927, end: 20161013
  6. ELECTROLYTE [Concomitant]
     Active Substance: UNSPECIFIED INGREDIENT
     Indication: PROPHYLAXIS AGAINST DEHYDRATION
     Dates: start: 20160327, end: 20161013
  7. ENCORTON [Concomitant]
     Active Substance: PREDNISONE
     Indication: MYOSITIS
     Dates: start: 20160927, end: 20161013
  8. FRAXIPARINE [Concomitant]
     Active Substance: NADROPARIN CALCIUM
     Indication: THROMBOSIS PROPHYLAXIS
     Dates: start: 20160818, end: 20160831
  9. FRAXIPARINE [Concomitant]
     Active Substance: NADROPARIN CALCIUM
     Indication: THROMBOSIS PROPHYLAXIS
     Dates: start: 20160818, end: 20160831
  10. AUGMENTIN [Concomitant]
     Active Substance: AMOXICILLIN\CLAVULANATE POTASSIUM
     Indication: MYOSITIS
     Dates: start: 20160919, end: 20160927
  11. MILURIT [Concomitant]
     Active Substance: ALLOPURINOL
     Indication: HYPERURICAEMIA
     Dosage: 100.0MG UNKNOWN
     Dates: start: 2000
  12. CLINDAMYCIN. [Concomitant]
     Active Substance: CLINDAMYCIN
     Indication: INFLAMMATION
     Dates: start: 20160627, end: 20160710
  13. CLINDAMYCIN. [Concomitant]
     Active Substance: CLINDAMYCIN
     Indication: MYALGIA
     Dates: start: 20160818, end: 20160831
  14. ENCORTON [Concomitant]
     Active Substance: PREDNISONE
     Indication: MYOSITIS
     Dates: start: 20160826, end: 20160831
  15. ACALABRUTINIB. [Suspect]
     Active Substance: ACALABRUTINIB
     Indication: CHRONIC LYMPHOCYTIC LEUKAEMIA
     Route: 048
     Dates: start: 20160615, end: 20160825
  16. ACALABRUTINIB. [Suspect]
     Active Substance: ACALABRUTINIB
     Indication: CHRONIC LYMPHOCYTIC LEUKAEMIA
     Route: 048
     Dates: start: 20160926, end: 20160928
  17. FRAXIPARINE [Concomitant]
     Active Substance: NADROPARIN CALCIUM
     Indication: MYOSITIS
     Dates: start: 20160818, end: 20160831
  18. FRAXIPARINE [Concomitant]
     Active Substance: NADROPARIN CALCIUM
     Indication: INFLAMMATION
     Dates: start: 20160927, end: 20161013
  19. AUGMENTIN [Concomitant]
     Active Substance: AMOXICILLIN\CLAVULANATE POTASSIUM
     Indication: INFLAMMATION
     Dates: start: 20160919, end: 20160927
  20. RAMIPRIL. [Concomitant]
     Active Substance: RAMIPRIL
     Dates: start: 201609, end: 2016
  21. ELECTROLYTE [Concomitant]
     Active Substance: UNSPECIFIED INGREDIENT
     Indication: BLOOD ELECTROLYTES ABNORMAL
     Dates: start: 20160327, end: 20161013
  22. CLINDAMYCIN. [Concomitant]
     Active Substance: CLINDAMYCIN
     Indication: MYALGIA
     Dates: start: 20160927, end: 20161013
  23. FRAXIPARINE [Concomitant]
     Active Substance: NADROPARIN CALCIUM
     Indication: THROMBOSIS PROPHYLAXIS
     Dates: start: 20160927, end: 20161013
  24. FRAXIPARINE [Concomitant]
     Active Substance: NADROPARIN CALCIUM
     Indication: THROMBOSIS PROPHYLAXIS
     Dates: start: 20160927, end: 20161013
  25. AUGMENTIN [Concomitant]
     Active Substance: AMOXICILLIN\CLAVULANATE POTASSIUM
     Indication: INFLAMMATION
     Dates: start: 20160821, end: 20160830
  26. CLINDAMYCIN. [Concomitant]
     Active Substance: CLINDAMYCIN
     Indication: MYALGIA
     Dates: start: 20160627, end: 20160710
  27. TRAMAL [Concomitant]
     Active Substance: TRAMADOL
     Indication: PAIN
     Dates: start: 20160927, end: 20161013
  28. OXYCONTIN [Concomitant]
     Active Substance: OXYCODONE HYDROCHLORIDE
     Indication: CONNECTIVE TISSUE DISORDER
     Dates: start: 20160818, end: 20160828
  29. HEVIRAN [Concomitant]
     Active Substance: ACYCLOVIR
     Indication: INFECTION PROPHYLAXIS
     Dosage: 1600.0MG UNKNOWN
     Dates: start: 2012
  30. AUGMENTIN [Concomitant]
     Active Substance: AMOXICILLIN\CLAVULANATE POTASSIUM
     Indication: PETECHIAE
     Dates: start: 20160919, end: 20160927
  31. OXYCONTIN [Concomitant]
     Active Substance: OXYCODONE HYDROCHLORIDE
     Indication: MYALGIA
     Dates: start: 20160927, end: 20161011
  32. AUGMENTIN [Concomitant]
     Active Substance: AMOXICILLIN\CLAVULANATE POTASSIUM
     Indication: MYOSITIS
     Dates: start: 20160821, end: 20160830
  33. BISEPTOL [Concomitant]
     Active Substance: SULFAMETHOXAZOLE\TRIMETHOPRIM
     Indication: INFECTION PROPHYLAXIS
     Dates: start: 2012
  34. FLUCONAZOLE. [Concomitant]
     Active Substance: FLUCONAZOLE
     Indication: MYALGIA
     Dates: start: 20160824, end: 20160830
  35. FLUCONAZOLE. [Concomitant]
     Active Substance: FLUCONAZOLE
     Indication: CONNECTIVE TISSUE DISORDER
     Dates: start: 20160824, end: 20160830
  36. ELECTROLYTE [Concomitant]
     Active Substance: UNSPECIFIED INGREDIENT
     Indication: BLOOD ELECTROLYTES ABNORMAL
     Dates: start: 20160818, end: 20160830
  37. ELECTROLYTE [Concomitant]
     Active Substance: UNSPECIFIED INGREDIENT
     Indication: PROPHYLAXIS AGAINST DEHYDRATION
     Dates: start: 20160818, end: 20160830
  38. CLINDAMYCIN. [Concomitant]
     Active Substance: CLINDAMYCIN
     Indication: MYOSITIS
     Dates: start: 20160627, end: 20160710
  39. CLINDAMYCIN. [Concomitant]
     Active Substance: CLINDAMYCIN
     Indication: MYOSITIS
     Dates: start: 20160818, end: 20160831
  40. CLINDAMYCIN. [Concomitant]
     Active Substance: CLINDAMYCIN
     Indication: INFLAMMATION
     Dates: start: 20160927, end: 20161013
  41. OXYCONTIN [Concomitant]
     Active Substance: OXYCODONE HYDROCHLORIDE
     Indication: CONNECTIVE TISSUE DISORDER
     Dates: start: 20160927, end: 20161011
  42. CLINDAMYCIN. [Concomitant]
     Active Substance: CLINDAMYCIN
     Indication: INFLAMMATION
     Dates: start: 20160818, end: 20160831

REACTIONS (2)
  - Soft tissue inflammation [Recovered/Resolved]
  - Thrombocytopenia [Recovered/Resolved]

NARRATIVE: CASE EVENT DATE: 20160927
